FAERS Safety Report 16105094 (Version 1)
Quarter: 2019Q2

REPORT INFORMATION
  Report Type: Spontaneous
  Country: US (occurrence: US)
  Receive Date: 20190321
  Receipt Date: 20190321
  Transmission Date: 20190711
  Serious: Yes (Life-Threatening, Hospitalization, Disabling, Other)
  Sender: FDA-Public Use
  Company Number: None

PATIENT
  Age: 69 Year
  Sex: Male
  Weight: 84.15 kg

DRUGS (9)
  1. HUMIRA [Suspect]
     Active Substance: ADALIMUMAB
     Indication: RHEUMATOID ARTHRITIS
     Dosage: ?          QUANTITY:1 INJECTION(S);OTHER FREQUENCY:EVERY TWO WEEKS;?
     Route: 058
  2. LISNOPRIL 15 MG [Concomitant]
     Active Substance: LISINOPRIL
  3. ATORVASTATIN [Concomitant]
     Active Substance: ATORVASTATIN
  4. PREDISONE [Concomitant]
     Active Substance: PREDNISONE
  5. METOPROLOL. [Concomitant]
     Active Substance: METOPROLOL
  6. MULTIVITAMIN [Concomitant]
     Active Substance: VITAMINS
  7. VITAMIN D NOS [Concomitant]
     Active Substance: VITAMIN D NOS
  8. URSODIOL. [Concomitant]
     Active Substance: URSODIOL
  9. OMEPRAZOLE. [Concomitant]
     Active Substance: OMEPRAZOLE

REACTIONS (2)
  - B-cell lymphoma [None]
  - Product complaint [None]

NARRATIVE: CASE EVENT DATE: 20190212
